FAERS Safety Report 12138579 (Version 2)
Quarter: 2016Q1

REPORT INFORMATION
  Report Type: Spontaneous
  Country: US (occurrence: US)
  Receive Date: 20160302
  Receipt Date: 20160330
  Transmission Date: 20160526
  Serious: Yes (Other)
  Sender: FDA-Public Use
  Company Number: US-TEVA-636465USA

PATIENT
  Age: 61 Year
  Sex: Female

DRUGS (1)
  1. ZECUITY [Suspect]
     Active Substance: SUMATRIPTAN SUCCINATE
     Route: 062
     Dates: start: 201602, end: 201602

REACTIONS (8)
  - Sunburn [Unknown]
  - Application site exfoliation [Unknown]
  - Limb discomfort [Unknown]
  - Skin exfoliation [Unknown]
  - Muscle tightness [Unknown]
  - Application site erythema [Unknown]
  - Application site dryness [Unknown]
  - Device battery issue [Unknown]

NARRATIVE: CASE EVENT DATE: 201602
